FAERS Safety Report 14290907 (Version 1)
Quarter: 2017Q4

REPORT INFORMATION
  Report Type: Report from Study
  Country: US (occurrence: US)
  Receive Date: 20171215
  Receipt Date: 20171215
  Transmission Date: 20180321
  Serious: Yes (Hospitalization, Other)
  Sender: FDA-Public Use
  Company Number: US-ROCHE-1424056

PATIENT
  Age: 30 Year
  Sex: Female

DRUGS (21)
  1. ACETAMINOPHEN/HYDROCODONE [Concomitant]
     Active Substance: ACETAMINOPHEN\HYDROCODONE
     Indication: PAIN
     Dosage: AS NEEDED,7.5/500 MG
     Route: 048
  2. GABAPENTIN. [Concomitant]
     Active Substance: GABAPENTIN
     Indication: NEURALGIA
     Route: 048
  3. GABAPENTIN. [Concomitant]
     Active Substance: GABAPENTIN
     Indication: MUSCLE SPASMS
  4. MOTRIN [Concomitant]
     Active Substance: IBUPROFEN
     Route: 065
  5. TRAZODONE HYDROCHLORIDE. [Concomitant]
     Active Substance: TRAZODONE HYDROCHLORIDE
     Dosage: 1-2 TABLETS AT BEDTIME AS NEEDED
     Route: 048
  6. DOCUSATE SODIUM. [Concomitant]
     Active Substance: DOCUSATE SODIUM
     Indication: CONSTIPATION
     Dosage: PRN CONSTIPATION
     Route: 048
  7. RITUXAN [Suspect]
     Active Substance: RITUXIMAB
     Indication: NEUROMYELITIS OPTICA SPECTRUM DISORDER
     Dosage: Q6MO
     Route: 042
     Dates: start: 2007
  8. METHYLPREDNISOLONE. [Concomitant]
     Active Substance: METHYLPREDNISOLONE
     Dosage: FUTHER DOSE GIVEN ON: 17/APR/2013
     Route: 042
     Dates: start: 20120828
  9. RITUXAN [Suspect]
     Active Substance: RITUXIMAB
     Indication: MULTIPLE SCLEROSIS
     Dosage: Q6MO
     Route: 042
     Dates: start: 201202
  10. RITUXAN [Suspect]
     Active Substance: RITUXIMAB
     Route: 042
     Dates: start: 20130920
  11. RITUXAN [Suspect]
     Active Substance: RITUXIMAB
     Dosage: Q6MO, FURTHER DOSE WAS GIVEN ON 17/APR/2013.
     Route: 042
     Dates: start: 20120828
  12. CLONAZEPAM. [Suspect]
     Active Substance: CLONAZEPAM
     Indication: PRODUCT USED FOR UNKNOWN INDICATION
     Route: 065
  13. ACETAMINOPHEN/OXYCODONE [Concomitant]
     Active Substance: ACETAMINOPHEN\OXYCODONE HYDROCHLORIDE
     Dosage: 5/325 MG
     Route: 048
  14. BETHANECHOL CHLORIDE. [Concomitant]
     Active Substance: BETHANECHOL CHLORIDE
     Route: 048
  15. METHYLPREDNISOLONE. [Concomitant]
     Active Substance: METHYLPREDNISOLONE
     Route: 042
     Dates: start: 201202
  16. LUNESTA [Concomitant]
     Active Substance: ESZOPICLONE
     Dosage: AT BEDTIME AS NEEDED
     Route: 048
  17. TYLENOL [Concomitant]
     Active Substance: ACETAMINOPHEN
     Route: 048
     Dates: start: 201202
  18. BENADRYL [Concomitant]
     Active Substance: DIPHENHYDRAMINE HYDROCHLORIDE
     Route: 042
     Dates: start: 201202
  19. BENADRYL [Concomitant]
     Active Substance: DIPHENHYDRAMINE HYDROCHLORIDE
     Dosage: FUTHER DOSE GIVEN ON: 17/APR/2013
     Route: 042
     Dates: start: 20120828
  20. SENOKOT [Concomitant]
     Active Substance: SENNOSIDES
     Indication: CONSTIPATION
     Dosage: TAKE 2 TABLETS AT BEDTIME PRN
     Route: 048
  21. TYLENOL [Concomitant]
     Active Substance: ACETAMINOPHEN
     Dosage: FUTHER DOSE GIVEN ON: 17/APR/2013
     Route: 048
     Dates: start: 20120828

REACTIONS (26)
  - Meningitis bacterial [Unknown]
  - Throat irritation [Recovered/Resolved]
  - Insomnia [Not Recovered/Not Resolved]
  - Decreased appetite [Unknown]
  - Throat irritation [Recovered/Resolved]
  - Cough [Unknown]
  - Intentional product use issue [Unknown]
  - Hypoaesthesia [Unknown]
  - Muscle spasms [Unknown]
  - Overdose [Unknown]
  - Ear pruritus [Recovered/Resolved]
  - Neuromyelitis optica spectrum disorder [Unknown]
  - Anxiety [Unknown]
  - Urinary tract infection [Unknown]
  - Weight fluctuation [Unknown]
  - Depression [Not Recovered/Not Resolved]
  - Burning sensation [Unknown]
  - Chills [Unknown]
  - Nasal congestion [Unknown]
  - Abdominal pain [Unknown]
  - Visual impairment [Unknown]
  - Spinal cord disorder [Unknown]
  - Nausea [Unknown]
  - Dyspnoea [Unknown]
  - Malaise [Unknown]
  - Off label use [Unknown]

NARRATIVE: CASE EVENT DATE: 2008
